FAERS Safety Report 7441282-1 (Version None)
Quarter: 2011Q2

REPORT INFORMATION
  Report Type: 
  Country: None (occurrence: None)
  Receive Date: 20110428
  Receipt Date: 20110420
  Transmission Date: 20111010
  Serious: No
  Sender: FDA-Public Use
  Company Number: US-BIOGENIDEC-2011BI015164

PATIENT
  Age: 24 Year
  Sex: Male

DRUGS (2)
  1. TYSABRI [Suspect]
     Indication: MULTIPLE SCLEROSIS
     Route: 042
     Dates: start: 20090619
  2. TYSABRI [Suspect]
     Route: 042
     Dates: start: 20070807, end: 20090119

REACTIONS (2)
  - BALANCE DISORDER [None]
  - HYPOAESTHESIA FACIAL [None]
